FAERS Safety Report 10645979 (Version 2)
Quarter: 2015Q1

REPORT INFORMATION
  Report Type: Spontaneous
  Country: NL (occurrence: NL)
  Receive Date: 20141211
  Receipt Date: 20150109
  Transmission Date: 20150720
  Serious: Yes (Hospitalization, Other)
  Sender: FDA-Public Use
  Company Number: NL-TEVA-527292ISR

PATIENT
  Age: 47 Year
  Sex: Female

DRUGS (2)
  1. METFORMINE [Concomitant]
     Active Substance: METFORMIN HYDROCHLORIDE
     Indication: DIABETES MELLITUS
  2. IBUPROFEN. [Suspect]
     Active Substance: IBUPROFEN
     Indication: PAIN

REACTIONS (8)
  - Hypotension [Unknown]
  - Hypersensitivity [Unknown]
  - Generalised erythema [Unknown]
  - Foot fracture [Unknown]
  - Swelling [Unknown]
  - Pruritus generalised [Unknown]
  - Fall [Unknown]
  - Spinal fracture [Unknown]
